FAERS Safety Report 20701768 (Version 1)
Quarter: 2022Q2

REPORT INFORMATION
  Report Type: Spontaneous
  Country: GB (occurrence: GB)
  Receive Date: 20220412
  Receipt Date: 20220412
  Transmission Date: 20220721
  Serious: Yes (Other)
  Sender: FDA-Public Use
  Company Number: GB-TAKEDA-2021TUS050637

PATIENT
  Age: 35 Year
  Sex: Female

DRUGS (3)
  1. ENTYVIO [Suspect]
     Active Substance: VEDOLIZUMAB
     Indication: Crohn^s disease
     Dosage: 300 MILLIGRAM, Q8WEEKS
     Route: 042
     Dates: start: 20210430
  2. IRON [Suspect]
     Active Substance: IRON
     Indication: Product used for unknown indication
     Dosage: UNK
     Route: 065
  3. FRAGMIN [Concomitant]
     Active Substance: DALTEPARIN SODIUM
     Indication: Thrombosis
     Dosage: UNK

REACTIONS (7)
  - Thrombosis [Unknown]
  - Viral infection [Recovering/Resolving]
  - Abdominal pain [Recovered/Resolved]
  - Diarrhoea [Unknown]
  - Nasopharyngitis [Unknown]
  - Cough [Unknown]
  - Sinusitis [Unknown]

NARRATIVE: CASE EVENT DATE: 20220301
